FAERS Safety Report 9803371 (Version 3)
Quarter: 2014Q1

REPORT INFORMATION
  Report Type: Report from Study
  Country: US (occurrence: US)
  Receive Date: 20140108
  Receipt Date: 20140217
  Transmission Date: 20141002
  Serious: Yes (Hospitalization, Other)
  Sender: FDA-Public Use
  Company Number: US-ASTRAZENECA-2012SE86740

PATIENT
  Age: 59 Year
  Sex: Female
  Weight: 102.1 kg

DRUGS (3)
  1. OMEPRAZOLE [Suspect]
     Route: 048
  2. SYMBICORT PMDI [Suspect]
     Dosage: 160/4.5, DOSE UNKNOWN BID
     Route: 055
  3. NEXIUM [Suspect]
     Indication: GASTROOESOPHAGEAL REFLUX DISEASE
     Route: 048
     Dates: start: 2001, end: 20131209

REACTIONS (8)
  - Hiatus hernia [Unknown]
  - Asthma [Unknown]
  - Nerve injury [Unknown]
  - Gastrooesophageal reflux disease [Unknown]
  - Oesophageal food impaction [Unknown]
  - Burning sensation [Unknown]
  - Drug dose omission [Unknown]
  - Drug ineffective [Unknown]
